FAERS Safety Report 19745893 (Version 1)
Quarter: 2021Q3

REPORT INFORMATION
  Report Type: Spontaneous
  Country: US (occurrence: US)
  Receive Date: 20210824
  Receipt Date: 20210824
  Transmission Date: 20211014
  Serious: No
  Sender: FDA-Public Use
  Company Number: None

PATIENT
  Age: 18 Year
  Sex: Female
  Weight: 52.6 kg

DRUGS (3)
  1. RISDIPLAM. [Suspect]
     Active Substance: RISDIPLAM
     Indication: SPINAL MUSCULAR ATROPHY
     Dosage: ?          OTHER ROUTE:GASTRIC TUBE?
     Dates: start: 20210709
  2. CETIRIZINE [Concomitant]
     Active Substance: CETIRIZINE HYDROCHLORIDE
     Dates: start: 20170625
  3. DEPO?PROVERA [Concomitant]
     Active Substance: MEDROXYPROGESTERONE ACETATE
     Dates: start: 20160101

REACTIONS (2)
  - Intermenstrual bleeding [None]
  - Vaginal haemorrhage [None]

NARRATIVE: CASE EVENT DATE: 20210823
